FAERS Safety Report 10267286 (Version 2)
Quarter: 2014Q3

REPORT INFORMATION
  Report Type: Spontaneous
  Country: FR (occurrence: FR)
  Receive Date: 20140630
  Receipt Date: 20140821
  Transmission Date: 20150326
  Serious: Yes (Hospitalization)
  Sender: FDA-Public Use
  Company Number: PHHY2014FR079161

PATIENT
  Sex: Male

DRUGS (2)
  1. NEORAL [Suspect]
     Active Substance: CYCLOSPORINE
     Dosage: MOTHER DOSE 50 MG, QD, DAILY
     Route: 064
     Dates: start: 201401
  2. NEORAL [Suspect]
     Active Substance: CYCLOSPORINE
     Dosage: MOTHER DOSE  150 MG, QD, DAILY
     Route: 064
     Dates: end: 20140301

REACTIONS (7)
  - Human herpesvirus 6 infection [Recovered/Resolved]
  - Inguinal hernia [Recovered/Resolved]
  - Foetal exposure during pregnancy [Unknown]
  - Premature baby [Recovered/Resolved]
  - Monocytosis [Recovered/Resolved]
  - Foetal growth restriction [Recovered/Resolved]
  - Neutropenia [Not Recovered/Not Resolved]

NARRATIVE: CASE EVENT DATE: 2014
